FAERS Safety Report 9937318 (Version 1)
Quarter: 2014Q1

REPORT INFORMATION
  Report Type: Spontaneous
  Country: IN (occurrence: IN)
  Receive Date: 20140302
  Receipt Date: 20140302
  Transmission Date: 20141002
  Serious: Yes (Hospitalization, Other)
  Sender: FDA-Public Use
  Company Number: IN-009507513-1402IND013370

PATIENT
  Age: 64 Year
  Sex: Male
  Weight: 79 kg

DRUGS (1)
  1. JANUMET [Suspect]
     Indication: DIABETES MELLITUS
     Dosage: DOSE 2, BD
     Route: 048

REACTIONS (3)
  - Arterial occlusive disease [Recovering/Resolving]
  - Chest pain [Recovering/Resolving]
  - Vascular graft [Recovering/Resolving]
